FAERS Safety Report 4945670-4 (Version None)
Quarter: 2006Q1

REPORT INFORMATION
  Report Type: 
  Country: None (occurrence: None)
  Receive Date: 20060117
  Receipt Date: 20050314
  Transmission Date: 20060701
  Serious: Yes (Other)
  Sender: FDA-Public Use
  Company Number: A03200302921

PATIENT
  Age: 52 Year
  Sex: Female
  Weight: 85.7298 kg

DRUGS (4)
  1. PLAVIX [Suspect]
     Indication: CAROTID ARTERY STENOSIS
     Dosage: 75 MG QD ORAL
     Route: 048
     Dates: start: 20031001, end: 20031001
  2. LOSARTAN POTASSIUM [Concomitant]
  3. VERAPAMIL [Concomitant]
  4. INSULIN [Concomitant]

REACTIONS (2)
  - BLINDNESS [None]
  - EYE HAEMORRHAGE [None]
